FAERS Safety Report 8352418-2 (Version None)
Quarter: 2012Q2

REPORT INFORMATION
  Report Type: 
  Country: None (occurrence: None)
  Receive Date: 20120511
  Receipt Date: 20120502
  Transmission Date: 20120825
  Serious: Yes (Disabling)
  Sender: FDA-Public Use
  Company Number: PHHO2012IN006756

PATIENT
  Sex: Male
  Weight: 53 kg

DRUGS (7)
  1. MYFORTIC [Concomitant]
     Indication: RENAL TRANSPLANT
     Dosage: 360 MG, TID
     Route: 048
     Dates: start: 20110613
  2. METOPROLOL TARTRATE [Concomitant]
     Indication: HYPERTENSION
     Dosage: 25 MG, BID
     Route: 048
     Dates: start: 20110621
  3. PREDNISOLONE [Concomitant]
     Indication: PROPHYLAXIS
     Dosage: 5 MG, QD
     Route: 048
     Dates: start: 20110614, end: 20110429
  4. AZTOR ASP [Concomitant]
     Indication: DYSLIPIDAEMIA
     Dosage: 10 MG, QD
     Route: 048
     Dates: start: 20110915, end: 20110429
  5. CERTICAN [Suspect]
     Indication: RENAL TRANSPLANT
     Dosage: 1.25 MG, BID
     Route: 048
     Dates: start: 20110823
  6. RANTAC [Concomitant]
     Indication: ANTACID THERAPY
     Dosage: 150 MG, QD
     Route: 048
     Dates: start: 20110621
  7. SEPTRAN [Concomitant]
     Indication: PROPHYLAXIS
     Dosage: 75 MG, QD
     Route: 048
     Dates: start: 20110614, end: 20120429

REACTIONS (1)
  - RADICULOPATHY [None]
